FAERS Safety Report 25730587 (Version 2)
Quarter: 2025Q4

REPORT INFORMATION
  Report Type: Spontaneous
  Country: US (occurrence: US)
  Receive Date: 20250827
  Receipt Date: 20251007
  Transmission Date: 20260118
  Serious: No
  Sender: SANOFI AVENTIS
  Company Number: US-SA-2025SA254223

PATIENT
  Age: 23 Year
  Sex: Male

DRUGS (2)
  1. ALTUVIIIO [Suspect]
     Active Substance: EFANESOCTOCOG ALFA
     Indication: Factor VIII deficiency
     Dosage: 5800 UNITS (5220-6380) ONCE WEEKLY FOR PROPHYLAXIS
     Route: 042
     Dates: start: 202502
  2. ALTUVIIIO [Suspect]
     Active Substance: EFANESOCTOCOG ALFA
     Dosage: 5800 UNITS (5220-6380) EVERY 48 HOURS AS NEEDED FOR BLEEDING
     Route: 042
     Dates: start: 202502

REACTIONS (1)
  - Haemorrhage [Recovered/Resolved]

NARRATIVE: CASE EVENT DATE: 20250820
